FAERS Safety Report 24228293 (Version 1)
Quarter: 2024Q3

REPORT INFORMATION
  Report Type: Spontaneous
  Country: JP (occurrence: JP)
  Receive Date: 20240820
  Receipt Date: 20240820
  Transmission Date: 20241016
  Serious: Yes (Hospitalization, Other)
  Sender: ACCORD
  Company Number: JP-Accord-441320

PATIENT
  Age: 76 Year
  Sex: Male

DRUGS (3)
  1. ETOPOSIDE [Suspect]
     Active Substance: ETOPOSIDE
     Indication: Adult T-cell lymphoma/leukaemia
     Dosage: MAINTENANCE THERAPY
  2. SOBUZOXANE [Suspect]
     Active Substance: SOBUZOXANE
     Indication: Adult T-cell lymphoma/leukaemia
     Dosage: MAINTENANCE THERAPY
  3. PREDNISOLONE [Suspect]
     Active Substance: PREDNISOLONE
     Indication: Adult T-cell lymphoma/leukaemia

REACTIONS (1)
  - Hepatitis B reactivation [Recovered/Resolved]
